FAERS Safety Report 8181890 (Version 12)
Quarter: 2015Q3

REPORT INFORMATION
  Report Type: Spontaneous
  Country: US (occurrence: US)
  Receive Date: 20111014
  Receipt Date: 20150702
  Transmission Date: 20151125
  Serious: Yes (Hospitalization, Disabling, Other)
  Sender: FDA-Public Use
  Company Number: US-009507513-1110USA01563

PATIENT
  Sex: Female
  Weight: 65.76 kg

DRUGS (5)
  1. FOSAMAX [Suspect]
     Active Substance: ALENDRONATE SODIUM
     Dosage: 70 MG, QW
     Route: 048
     Dates: start: 20040911, end: 20100120
  2. FOSAMAX [Suspect]
     Active Substance: ALENDRONATE SODIUM
     Indication: OSTEOPENIA
     Dosage: 70 MG, UNK
     Route: 048
     Dates: start: 20080609
  3. SYNTHROID [Concomitant]
     Active Substance: LEVOTHYROXINE SODIUM
     Indication: HYPOTHYROIDISM
     Dosage: 50 MICROGRAM, UNK
     Route: 048
     Dates: start: 1994
  4. FOSAMAX [Suspect]
     Active Substance: ALENDRONATE SODIUM
     Indication: OSTEOPENIA
     Dosage: UNK
     Route: 048
     Dates: start: 2003, end: 20100120
  5. ALENDRONATE SODIUM. [Suspect]
     Active Substance: ALENDRONATE SODIUM
     Dosage: 70 MG, UNK
     Route: 048
     Dates: start: 20081218

REACTIONS (93)
  - Mediastinal disorder [Unknown]
  - Foot fracture [Unknown]
  - Ovarian cyst [Unknown]
  - Nasal polyps [Unknown]
  - Dysarthria [Unknown]
  - Osteoarthritis [Unknown]
  - Joint injury [Unknown]
  - Lymphadenopathy [Unknown]
  - Gastrooesophageal reflux disease [Unknown]
  - Pain in extremity [Unknown]
  - Diarrhoea [Unknown]
  - Intramedullary rod insertion [Unknown]
  - Open reduction of fracture [Unknown]
  - Femur fracture [Unknown]
  - Pain [Not Recovered/Not Resolved]
  - Pain [Unknown]
  - Fracture [Unknown]
  - Intervertebral disc disorder [Unknown]
  - Fall [Unknown]
  - Post procedural haematoma [Unknown]
  - Conjunctivitis [Unknown]
  - Rotator cuff syndrome [Unknown]
  - Cataract operation [Unknown]
  - Abdominal pain upper [Unknown]
  - Oedema peripheral [Unknown]
  - Asthenia [Unknown]
  - Oedema peripheral [Unknown]
  - Thyroid disorder [Unknown]
  - Spinal osteoarthritis [Unknown]
  - Osteoarthritis [Unknown]
  - Pulmonary mass [Unknown]
  - Muscle strain [Unknown]
  - Dyspnoea exertional [Unknown]
  - Mitral valve incompetence [Unknown]
  - Breast cyst [Unknown]
  - Insomnia [Unknown]
  - Lumbar radiculopathy [Unknown]
  - Adverse event [Unknown]
  - Peroneal nerve palsy [Recovering/Resolving]
  - Palpitations [Unknown]
  - Gait disturbance [Unknown]
  - Hypertension [Unknown]
  - Attention deficit/hyperactivity disorder [Unknown]
  - Intervertebral disc protrusion [Unknown]
  - Hyperlipidaemia [Unknown]
  - Cushing^s syndrome [Unknown]
  - Pulmonary mass [Unknown]
  - Muscle strain [Unknown]
  - Oedema peripheral [Unknown]
  - Oedema peripheral [Unknown]
  - Thyroidectomy [Unknown]
  - Wrist fracture [Unknown]
  - Appendix disorder [Unknown]
  - Uterine disorder [Unknown]
  - Seizure [Unknown]
  - Anxiety [Not Recovered/Not Resolved]
  - Tooth disorder [Unknown]
  - Depression [Not Recovered/Not Resolved]
  - Bursitis [Unknown]
  - Haemoglobin abnormal [Unknown]
  - Herpes zoster [Unknown]
  - Rheumatoid arthritis [Unknown]
  - Adrenal adenoma [Unknown]
  - Muscular weakness [Unknown]
  - Muscle injury [Unknown]
  - Femur fracture [Unknown]
  - Intramedullary rod insertion [Unknown]
  - Tonsillar disorder [Unknown]
  - Fatigue [Unknown]
  - Intervertebral disc disorder [Unknown]
  - Foot deformity [Unknown]
  - Rotator cuff syndrome [Unknown]
  - Back pain [Recovering/Resolving]
  - Bone disorder [Unknown]
  - Increased tendency to bruise [Unknown]
  - Blood cholesterol increased [Unknown]
  - Nasal disorder [Unknown]
  - Tricuspid valve incompetence [Unknown]
  - Weight increased [Unknown]
  - Osteoma [Unknown]
  - Muscle strain [Unknown]
  - Nephrolithiasis [Unknown]
  - Crohn^s disease [Unknown]
  - Abdominal pain [Unknown]
  - Femur fracture [Unknown]
  - Sarcoidosis [Unknown]
  - Migraine [Not Recovered/Not Resolved]
  - Fall [Unknown]
  - Compression fracture [Not Recovered/Not Resolved]
  - Osteoporosis [Unknown]
  - Pain [Unknown]
  - Diabetes mellitus [Unknown]
  - Face oedema [Unknown]

NARRATIVE: CASE EVENT DATE: 2003
